FAERS Safety Report 24876239 (Version 1)
Quarter: 2025Q1

REPORT INFORMATION
  Report Type: Spontaneous
  Country: GB (occurrence: GB)
  Receive Date: 20250123
  Receipt Date: 20250123
  Transmission Date: 20250408
  Serious: Yes (Other)
  Sender: AUROBINDO
  Company Number: GB-MHRA-TPP15331920C11418931YC1736327992111

PATIENT
  Age: 86 Year
  Sex: Female
  Weight: 43 kg

DRUGS (6)
  1. IBUPROFEN [Suspect]
     Active Substance: IBUPROFEN
     Indication: Ill-defined disorder
     Route: 065
  2. SOOLANTRA [Concomitant]
     Active Substance: IVERMECTIN
     Indication: Ill-defined disorder
     Route: 065
     Dates: start: 20241206, end: 20250105
  3. COCODAMOL [Concomitant]
     Active Substance: ACETAMINOPHEN\CODEINE PHOSPHATE
     Indication: Ill-defined disorder
     Route: 065
     Dates: start: 20241230
  4. SENNA [Concomitant]
     Active Substance: SENNOSIDES
     Indication: Ill-defined disorder
     Route: 065
     Dates: start: 20241230
  5. CLINITAS HYDRATE [Concomitant]
     Indication: Ill-defined disorder
     Route: 065
     Dates: start: 20230614
  6. ACETAMINOPHEN [Concomitant]
     Active Substance: ACETAMINOPHEN
     Indication: Ill-defined disorder
     Route: 065
     Dates: start: 20230614

REACTIONS (1)
  - Gastritis [Recovered/Resolved]

NARRATIVE: CASE EVENT DATE: 20241231
